FAERS Safety Report 13057995 (Version 1)
Quarter: 2016Q4

REPORT INFORMATION
  Report Type: Report from Study
  Country: CA (occurrence: CA)
  Receive Date: 20161223
  Receipt Date: 20161223
  Transmission Date: 20170207
  Serious: Yes (Hospitalization)
  Sender: FDA-Public Use
  Company Number: CA-ROCHE-1639264

PATIENT
  Age: 64 Year
  Sex: Male
  Weight: 63.6 kg

DRUGS (9)
  1. NORMAL SALINE [Concomitant]
     Active Substance: SODIUM CHLORIDE
     Dosage: 1 OTHER
     Route: 042
     Dates: start: 20150925, end: 20150925
  2. VOLTAREN [Concomitant]
     Active Substance: DICLOFENAC SODIUM
     Indication: PARAESTHESIA
     Route: 061
     Dates: start: 20150828
  3. HYDROMORPH CR [Concomitant]
     Indication: PAIN IN EXTREMITY
     Route: 048
     Dates: start: 20151022
  4. TYLENOL [Concomitant]
     Active Substance: ACETAMINOPHEN
     Indication: PARAESTHESIA
     Route: 048
     Dates: start: 20150828
  5. SENNOKOTT [Concomitant]
     Indication: CONSTIPATION
     Route: 048
     Dates: start: 20151015, end: 20151029
  6. GABAPENTIN. [Concomitant]
     Active Substance: GABAPENTIN
     Indication: PAIN IN EXTREMITY
     Route: 065
     Dates: start: 20150930, end: 20151009
  7. HYDROMORPH [Concomitant]
     Active Substance: HYDROMORPHONE
     Indication: PAIN IN EXTREMITY
     Route: 048
     Dates: start: 20151022
  8. DEXAMETHASONE. [Concomitant]
     Active Substance: DEXAMETHASONE
     Indication: PAIN
     Route: 065
     Dates: start: 20151031
  9. ATEZOLIZUMAB [Suspect]
     Active Substance: ATEZOLIZUMAB
     Indication: BLADDER TRANSITIONAL CELL CARCINOMA METASTATIC
     Dosage: MOST RECENT DOSE 1200 MG ON 02 SEP 2015
     Route: 042
     Dates: start: 20150902

REACTIONS (1)
  - Pleural effusion [Not Recovered/Not Resolved]

NARRATIVE: CASE EVENT DATE: 20150922
